FAERS Safety Report 5386387-4 (Version None)
Quarter: 2007Q3

REPORT INFORMATION
  Report Type: 
  Country: None (occurrence: None)
  Receive Date: 20070713
  Receipt Date: 20070621
  Transmission Date: 20080115
  Serious: Yes (Death, Hospitalization)
  Sender: FDA-Public Use
  Company Number: BE-BRISTOL-MYERS SQUIBB COMPANY-13842356

PATIENT
  Age: 60 Year
  Sex: Female

DRUGS (3)
  1. GLUCOPHAGE [Suspect]
     Indication: DIABETES MELLITUS
     Route: 048
  2. NOVONORM [Suspect]
     Indication: DIABETES MELLITUS
  3. LEXOTAN [Concomitant]
     Indication: BLOOD PRESSURE

REACTIONS (2)
  - DEATH [None]
  - HERPES ZOSTER [None]
